FAERS Safety Report 5817578-3 (Version None)
Quarter: 2008Q3

REPORT INFORMATION
  Report Type: 
  Country: None (occurrence: None)
  Receive Date: 20080716
  Receipt Date: 20080707
  Transmission Date: 20090109
  Serious: Yes (Death)
  Sender: FDA-Public Use
  Company Number: GXKR2008CN06314

PATIENT
  Age: 60 Year
  Sex: Male

DRUGS (1)
  1. ITRACONAZOLE [Suspect]
     Indication: BRONCHOPULMONARY ASPERGILLOSIS
     Dosage: 400 MG/DAY,

REACTIONS (2)
  - ARRHYTHMIA [None]
  - BLOOD PRESSURE INCREASED [None]
